FAERS Safety Report 6545863-9 (Version None)
Quarter: 2010Q1

REPORT INFORMATION
  Report Type: 
  Country: None (occurrence: None)
  Receive Date: 20100121
  Receipt Date: 20090130
  Transmission Date: 20100710
  Serious: No
  Sender: FDA-Public Use
  Company Number: US-ALLERGAN-0901161US

PATIENT
  Sex: Female

DRUGS (1)
  1. TAZORAC [Suspect]
     Indication: SKIN CANCER
     Dosage: WEEKENDS QD FOR ONLY 2 WEEKENDS
     Route: 061
     Dates: start: 20081001

REACTIONS (3)
  - DRUG INEFFECTIVE [None]
  - SKIN EXFOLIATION [None]
  - SKIN HYPOPIGMENTATION [None]
